FAERS Safety Report 14403596 (Version 1)
Quarter: 2018Q1

REPORT INFORMATION
  Report Type: Spontaneous
  Country: US (occurrence: US)
  Receive Date: 20180116
  Receipt Date: 20180116
  Transmission Date: 20180509
  Serious: Yes (Hospitalization)
  Sender: FDA-Public Use
  Company Number: None

PATIENT
  Age: 32 Year
  Sex: Female

DRUGS (8)
  1. ASHLYNA [Concomitant]
     Active Substance: ETHINYL ESTRADIOL\LEVONORGESTREL
  2. PRAVASTATIN. [Concomitant]
     Active Substance: PRAVASTATIN
  3. GILENYA [Suspect]
     Active Substance: FINGOLIMOD HYDROCHLORIDE
     Indication: MULTIPLE SCLEROSIS
     Route: 048
     Dates: start: 20151222
  4. NORETHINDRONE. [Concomitant]
     Active Substance: NORETHINDRONE
  5. BUPROPION. [Concomitant]
     Active Substance: BUPROPION
  6. VENLAFAX [Concomitant]
  7. CALCIFEROL [Concomitant]
     Active Substance: ERGOCALCIFEROL
  8. EFFEXOR [Concomitant]
     Active Substance: VENLAFAXINE HYDROCHLORIDE

REACTIONS (3)
  - Fall [None]
  - Muscular weakness [None]
  - Therapy cessation [None]

NARRATIVE: CASE EVENT DATE: 20180112
